FAERS Safety Report 13598902 (Version 5)
Quarter: 2021Q4

REPORT INFORMATION
  Report Type: Spontaneous
  Country: CA (occurrence: CA)
  Receive Date: 20170531
  Receipt Date: 20211019
  Transmission Date: 20220303
  Serious: Yes (Other)
  Sender: FDA-Public Use
  Company Number: CA-PFIZER INC-2016364480

PATIENT
  Age: 61 Year
  Sex: Male

DRUGS (4)
  1. XELJANZ [Suspect]
     Active Substance: TOFACITINIB CITRATE
     Indication: Rheumatoid arthritis
     Dosage: 5 MG, 2X/DAY
     Route: 048
     Dates: start: 20160623
  2. PREDNISONE [Concomitant]
     Active Substance: PREDNISONE
     Dosage: 10 MG, 1X/DAY
     Dates: start: 201408
  3. PREDNISONE [Concomitant]
     Active Substance: PREDNISONE
     Dosage: 5 MG, 1X/DAY
  4. METHOTREXATE [Concomitant]
     Active Substance: METHOTREXATE
     Indication: Rheumatoid arthritis
     Dosage: 20 MG, WEEKLY
     Route: 058
     Dates: start: 20140804

REACTIONS (9)
  - Loss of consciousness [Unknown]
  - Hernia [Unknown]
  - Drug ineffective [Unknown]
  - Therapeutic product effect incomplete [Unknown]
  - Thirst [Not Recovered/Not Resolved]
  - Flatulence [Not Recovered/Not Resolved]
  - Abdominal pain upper [Unknown]
  - Pain in extremity [Not Recovered/Not Resolved]
  - Hypoaesthesia [Not Recovered/Not Resolved]

NARRATIVE: CASE EVENT DATE: 20160101
